FAERS Safety Report 7920887-5 (Version None)
Quarter: 2011Q4

REPORT INFORMATION
  Report Type: 
  Country: None (occurrence: None)
  Receive Date: 20111117
  Receipt Date: 20110913
  Transmission Date: 20120403
  Serious: No
  Sender: FDA-Public Use
  Company Number: US-GLAXOSMITHKLINE-A0945044A

PATIENT
  Sex: Female

DRUGS (1)
  1. VOTRIENT [Suspect]
     Indication: SYNOVIAL SARCOMA
     Dosage: 800MG PER DAY
     Dates: start: 20110830

REACTIONS (8)
  - PAIN [None]
  - FLATULENCE [None]
  - DIARRHOEA [None]
  - SENSORY DISTURBANCE [None]
  - CHANGE OF BOWEL HABIT [None]
  - BURNING SENSATION [None]
  - ERUCTATION [None]
  - OFF LABEL USE [None]
